FAERS Safety Report 23626428 (Version 1)
Quarter: 2024Q1

REPORT INFORMATION
  Report Type: Spontaneous
  Country: US (occurrence: US)
  Receive Date: 20240313
  Receipt Date: 20240313
  Transmission Date: 20240409
  Serious: No
  Sender: FDA-Public Use
  Company Number: US-ABBVIE-5671922

PATIENT

DRUGS (1)
  1. BOTOX [Suspect]
     Active Substance: ONABOTULINUMTOXINA
     Indication: Face lift
     Dosage: TIME INTERVAL: AS NECESSARY
     Route: 065

REACTIONS (7)
  - Headache [Recovered/Resolved]
  - Pain [Recovered/Resolved]
  - Nausea [Recovered/Resolved]
  - Musculoskeletal stiffness [Recovered/Resolved]
  - Influenza like illness [Recovered/Resolved]
  - Myalgia [Recovered/Resolved]
  - Vertigo [Recovered/Resolved]
